FAERS Safety Report 5739104-X (Version None)
Quarter: 2008Q2

REPORT INFORMATION
  Report Type: 
  Country: None (occurrence: None)
  Receive Date: 20080515
  Receipt Date: 20080507
  Transmission Date: 20081010
  Serious: Yes (Other)
  Sender: FDA-Public Use
  Company Number: US-ASTRAZENECA-2006UW11458

PATIENT
  Age: 39 Year
  Sex: Male
  Weight: 136.4 kg

DRUGS (9)
  1. SEROQUEL [Suspect]
     Indication: ANXIETY
     Route: 048
     Dates: start: 20000101, end: 20060101
  2. SEROQUEL [Suspect]
     Indication: DEPRESSION
     Route: 048
     Dates: start: 20000101, end: 20060101
  3. SEROQUEL [Suspect]
     Indication: BIPOLAR DISORDER
     Route: 048
     Dates: start: 20000101, end: 20060101
  4. SEROQUEL [Suspect]
     Route: 048
     Dates: start: 19980101
  5. SEROQUEL [Suspect]
     Route: 048
     Dates: start: 19980101
  6. SEROQUEL [Suspect]
     Route: 048
     Dates: start: 19980101
  7. ABILIFY [Concomitant]
     Dates: start: 20060831
  8. TRAZODONE HCL [Concomitant]
     Dates: start: 20070104
  9. SERAPHIM [Concomitant]

REACTIONS (5)
  - CIRCUMCISION [None]
  - CYST [None]
  - DIABETES MELLITUS [None]
  - NEOPLASM MALIGNANT [None]
  - SHOULDER OPERATION [None]
